APPROVED DRUG PRODUCT: LISINOPRIL
Active Ingredient: LISINOPRIL
Strength: 30MG
Dosage Form/Route: TABLET;ORAL
Application: A076063 | Product #006
Applicant: HIKMA INTERNATIONAL PHARMACEUTICALS LLC
Approved: Jun 27, 2003 | RLD: No | RS: No | Type: DISCN